FAERS Safety Report 8495681 (Version 4)
Quarter: 2012Q4

REPORT INFORMATION
  Report Type: 
  Country: CA (occurrence: CA)
  Receive Date: 20120405
  Receipt Date: 20121211
  Transmission Date: 20130627
  Serious: Yes (Hospitalization, Other)
  Sender: FDA-Public Use
  Company Number: PHHY2011CA53825

PATIENT
  Sex: Male

DRUGS (22)
  1. CLOZARIL [Suspect]
     Indication: SCHIZOPHRENIA, PARANOID TYPE
     Dosage: UNK UKN, UNK
     Dates: start: 20011127
  2. CLOZARIL [Suspect]
     Dosage: UNK UKN, Reduced dose
     Dates: start: 2003, end: 20120405
  3. CLOZARIL [Suspect]
     Dosage: UNK UKN, UNK
     Dates: start: 20121030, end: 20121127
  4. DIFLUCAN [Concomitant]
     Dosage: UNK UKN, UNK
  5. VALTREX [Concomitant]
     Dosage: UNK UKN, UNK
  6. DILAUDID [Concomitant]
     Dosage: UNK UKN, UNK
  7. MAGNESIUM OXIDE [Concomitant]
     Dosage: UNK UKN, UNK
  8. K-DUR [Concomitant]
     Dosage: UNK UKN, UNK
  9. COLACE [Concomitant]
     Dosage: UNK UKN, UNK
  10. ZANTAC [Concomitant]
     Dosage: UNK UKN, UNK
  11. HUMULIN N [Concomitant]
     Dosage: UNK UKN, UNK
  12. HUMALOG [Concomitant]
     Dosage: UNK UKN, UNK
  13. FLOMAX ^BOEHRINGER INGELHEIM^ [Concomitant]
     Dosage: UNK UKN, UNK
  14. ANTIPSYCHOTICS [Concomitant]
     Dosage: UNK UKN, UNK
  15. CYTARABINE [Concomitant]
     Dosage: UNK UKN, UNK
     Route: 037
  16. DOXORUBICIN [Concomitant]
     Dosage: UNK UKN, UNK
  17. VINCRISTINE [Concomitant]
     Dosage: UNK UKN, UNK
  18. CYCLOPHOSPHAMIDE [Concomitant]
     Dosage: UNK UKN, UNK
  19. METHOTREXATE [Concomitant]
     Dosage: UNK UKN, UNK
  20. IFOSFAMIDE [Concomitant]
     Dosage: UNK UKN, UNK
  21. VP-16 [Concomitant]
     Dosage: UNK UKN, UNK
  22. RITUXIMAB [Concomitant]
     Dosage: 375 mg/m2, UNK

REACTIONS (22)
  - Burkitt^s lymphoma stage IV [Unknown]
  - General physical health deterioration [Unknown]
  - Bone pain [Unknown]
  - Diabetes mellitus [Unknown]
  - Psychiatric decompensation [Unknown]
  - Protein total increased [Unknown]
  - Lymphadenopathy [Unknown]
  - Splenomegaly [Unknown]
  - Abscess [Unknown]
  - Aplasia [Unknown]
  - Liver injury [Unknown]
  - Thrombocytopenia [Unknown]
  - Platelet count decreased [Unknown]
  - Antipsychotic drug level increased [Unknown]
  - Chest pain [Unknown]
  - Anaemia [Unknown]
  - White blood cell count decreased [Unknown]
  - Neutropenia [Unknown]
  - Hypermetabolism [Unknown]
  - Gastrooesophageal reflux disease [Unknown]
  - Hypertension [Unknown]
  - Pyrexia [Unknown]
